FAERS Safety Report 9379497 (Version 1)
Quarter: 2013Q3

REPORT INFORMATION
  Report Type: Spontaneous
  Country: CH (occurrence: CH)
  Receive Date: 20130702
  Receipt Date: 20130702
  Transmission Date: 20140515
  Serious: Yes (Hospitalization)
  Sender: FDA-Public Use
  Company Number: PHHY2013CH065866

PATIENT
  Age: 82 Year
  Sex: Female

DRUGS (12)
  1. RASILEZ [Suspect]
     Dosage: 150 MG, QD
     Route: 048
     Dates: end: 20130329
  2. GALVUS [Suspect]
     Dosage: 50 MG, QD
     Route: 048
     Dates: end: 20130329
  3. GLUCOPHAGE [Suspect]
     Dosage: UNK UKN, UNK
     Route: 048
     Dates: end: 20130329
  4. XENETIX 350 [Suspect]
     Dosage: 1 DF, UKN
     Route: 040
     Dates: start: 20130325, end: 20130325
  5. ASPIRIN CARDIO [Concomitant]
     Dosage: 100 MG, QD
     Route: 048
  6. PLAVIX [Concomitant]
     Dosage: 75 MG, QD
     Route: 048
  7. DILATREND [Concomitant]
     Dosage: 25 MG, OD
     Route: 048
     Dates: end: 20130329
  8. CARDURA [Concomitant]
     Dosage: 4 MG, QD
     Route: 048
     Dates: end: 20130329
  9. SORTIS [Concomitant]
     Dosage: 80MG QD
     Route: 048
  10. SORTIS [Concomitant]
     Dosage: 10 MG, PER DAY
     Route: 048
  11. HYGROTON [Concomitant]
     Dosage: 12.5 MG, QD
     Route: 048
     Dates: end: 20130329
  12. DOXIUM [Concomitant]
     Dosage: 500 MG, BID
     Route: 048
     Dates: end: 20130329

REACTIONS (5)
  - Lactic acidosis [Recovered/Resolved]
  - Vitamin B12 deficiency [Recovering/Resolving]
  - Hypoglycaemia [Recovered/Resolved]
  - Renal failure acute [Recovering/Resolving]
  - Hyperkalaemia [Recovered/Resolved]
